FAERS Safety Report 4700769-2 (Version None)
Quarter: 2005Q2

REPORT INFORMATION
  Report Type: 
  Country: None (occurrence: None)
  Receive Date: 20050624
  Receipt Date: 20040708
  Transmission Date: 20051028
  Serious: Yes (Hospitalization)
  Sender: FDA-Public Use
  Company Number: 373989

PATIENT
  Age: 75 Year
  Sex: Male

DRUGS (14)
  1. XELODA [Suspect]
     Indication: PROSTATE CANCER
     Dosage: 1500 MG 2 PER DAY ORAL
     Route: 048
     Dates: start: 20040320, end: 20040405
  2. THALOMID [Suspect]
     Indication: PROSTATE CANCER
     Dosage: 50 MG 1 PER DAY ORAL
     Route: 048
     Dates: start: 20031029, end: 20040420
  3. TAXOTERE [Suspect]
     Indication: CHEMOTHERAPY
  4. TAXOTERE [Suspect]
     Indication: DRUG USE FOR UNKNOWN INDICATION
  5. EMCYT (ESTRAMUSTINE) [Suspect]
     Indication: CHEMOTHERAPY
  6. EMCYT (ESTRAMUSTINE) [Suspect]
     Indication: DRUG USE FOR UNKNOWN INDICATION
  7. CYTADREN (AMINOGLUTETHIMIDE) [Concomitant]
  8. HYDROCORTISONE [Concomitant]
  9. PROSCAR [Concomitant]
  10. CALCITRIOL [Concomitant]
  11. UNSPECIFIED DRUG (GENERIC COMPONENT(S) UNKNOWN) [Concomitant]
  12. LUPRON [Concomitant]
  13. EPOGEN [Concomitant]
  14. ZOMETA [Concomitant]

REACTIONS (4)
  - DEHYDRATION [None]
  - DIARRHOEA [None]
  - MEDICATION ERROR [None]
  - NAUSEA [None]
